FAERS Safety Report 6710755-9 (Version None)
Quarter: 2010Q2

REPORT INFORMATION
  Report Type: 
  Country: None (occurrence: None)
  Receive Date: 20100504
  Receipt Date: 20100504
  Transmission Date: 20101027
  Serious: Yes (Disabling)
  Sender: FDA-Public Use
  Company Number: None

PATIENT
  Age: 57 Year
  Sex: Female
  Weight: 53.978 kg

DRUGS (1)
  1. LORATADINE [Suspect]
     Indication: HYPERSENSITIVITY
     Dosage: 10MG AS NEEDED PO
     Route: 048
     Dates: start: 20090101, end: 20100422

REACTIONS (10)
  - ASTHENIA [None]
  - BLISTER [None]
  - CELLULITIS [None]
  - GASTRIC DISORDER [None]
  - NAUSEA [None]
  - RASH [None]
  - SKIN CHAPPED [None]
  - SWELLING [None]
  - URTICARIA [None]
  - VOMITING [None]
